FAERS Safety Report 9221836 (Version 1)
Quarter: 2013Q2

REPORT INFORMATION
  Report Type: Spontaneous
  Country: CH (occurrence: None)
  Receive Date: 20130408
  Receipt Date: 20130408
  Transmission Date: 20140414
  Serious: Yes (Hospitalization)
  Sender: FDA-Public Use
  Company Number: SYM-2013-02399

PATIENT
  Age: 64 Year
  Sex: Female

DRUGS (8)
  1. DILZEM [Suspect]
     Indication: ATRIAL FIBRILLATION
     Dosage: 60 MG, 3 IN 1 D, ORAL
     Dates: start: 20060131, end: 20060202
  2. DILZEM [Suspect]
     Indication: ATRIAL FLUTTER
     Dosage: 60 MG, 3 IN 1 D, ORAL
     Dates: start: 20060131, end: 20060202
  3. DILTIAZEM (DILTIAZEM) (DILTIAZEM) [Suspect]
     Indication: ATRIAL FIBRILLATION
     Dosage: 90 MG, 2 IN 1 D, ORAL
     Dates: start: 20060203, end: 20060208
  4. DILTIAZEM (DILTIAZEM) (DILTIAZEM) [Suspect]
     Indication: ATRIAL FLUTTER
     Dosage: 90 MG, 2 IN 1 D, ORAL
     Dates: start: 20060203, end: 20060208
  5. DIGOXINE (DIGOXIN) (DIGOXIN) [Concomitant]
  6. FRAXIPARINE (HEPARIN-FRACTION, CALCIUM SALT) (HEPARIN-FRACTION, CALCIUM SALT) [Concomitant]
  7. ACETYLSALICYLIC ACID (ACETYLSALICYLIC ACID)  (ACETYLSALICYLIC ACID) [Concomitant]
  8. TAVEGYL (CLEMASTINE FUMARATE) (CLEMASTINE FUMARATE) [Concomitant]

REACTIONS (9)
  - Nausea [None]
  - Diarrhoea [None]
  - Pyrexia [None]
  - Rash [None]
  - Malaise [None]
  - Blister [None]
  - Dyspnoea [None]
  - Erythema multiforme [None]
  - Dysuria [None]
